FAERS Safety Report 15265164 (Version 1)
Quarter: 2018Q3

REPORT INFORMATION
  Report Type: Spontaneous
  Country: US (occurrence: US)
  Receive Date: 20180723
  Receipt Date: 20180723
  Transmission Date: 20181010
  Serious: No
  Sender: FDA-Public Use
  Company Number: None

PATIENT
  Age: 60 Year
  Sex: Male
  Weight: 156.4 kg

DRUGS (2)
  1. CEFAZOLIN 1G/50ML IVPB [Concomitant]
     Dates: start: 20180326, end: 20180327
  2. MORPHINE SULFATE. [Suspect]
     Active Substance: MORPHINE SULFATE
     Indication: PAIN
     Route: 042
     Dates: start: 20180326, end: 20180326

REACTIONS (2)
  - Blood pressure decreased [None]
  - Bradycardia [None]

NARRATIVE: CASE EVENT DATE: 20180326
